FAERS Safety Report 18795636 (Version 3)
Quarter: 2021Q1

REPORT INFORMATION
  Report Type: Report from Study
  Country: EC (occurrence: EC)
  Receive Date: 20210127
  Receipt Date: 20210303
  Transmission Date: 20210419
  Serious: Yes (Hospitalization, Other)
  Sender: FDA-Public Use
  Company Number: PHHY2015EC028940

PATIENT
  Age: 53 Year
  Sex: Male
  Weight: 76 kg

DRUGS (7)
  1. TASIGNA [Suspect]
     Active Substance: NILOTINIB
     Dosage: 400 MG, BID
     Route: 048
     Dates: start: 20180717
  2. TASIGNA [Suspect]
     Active Substance: NILOTINIB
     Dosage: 400 MG, BID
     Route: 048
     Dates: start: 20150928, end: 20151025
  3. TASIGNA [Suspect]
     Active Substance: NILOTINIB
     Dosage: 400 MG, BID
     Route: 048
     Dates: start: 20160315, end: 20171220
  4. TASIGNA [Suspect]
     Active Substance: NILOTINIB
     Dosage: 600 MG, QD (400 MG IN THE MORNING AND 200 MG IN THE NIGHT).
     Route: 048
     Dates: start: 20171221, end: 20180716
  5. TASIGNA [Suspect]
     Active Substance: NILOTINIB
     Dosage: 200 MG, BID
     Route: 048
     Dates: start: 20151026, end: 20160314
  6. TASIGNA [Suspect]
     Active Substance: NILOTINIB
     Dosage: 400 MG, QD
     Route: 048
     Dates: start: 20150625, end: 20150927
  7. TASIGNA [Suspect]
     Active Substance: NILOTINIB
     Indication: CHRONIC MYELOID LEUKAEMIA
     Dosage: 400 MG, BID
     Route: 048
     Dates: start: 20150220, end: 20150624

REACTIONS (7)
  - Oropharyngeal pain [Recovered/Resolved]
  - COVID-19 [Recovering/Resolving]
  - Fall [Recovering/Resolving]
  - Cholelithiasis [Recovered/Resolved]
  - Fracture pain [Recovering/Resolving]
  - Scapula fracture [Unknown]
  - Nasopharyngitis [Recovered/Resolved]

NARRATIVE: CASE EVENT DATE: 20150305
